FAERS Safety Report 11128000 (Version 1)
Quarter: 2015Q2

REPORT INFORMATION
  Report Type: Spontaneous
  Country: GR (occurrence: GR)
  Receive Date: 20150521
  Receipt Date: 20150521
  Transmission Date: 20150821
  Serious: Yes (Hospitalization)
  Sender: FDA-Public Use
  Company Number: GR-PFIZER INC-2015167641

PATIENT
  Age: 22 Year
  Sex: Male
  Weight: 72 kg

DRUGS (3)
  1. DALACIN C [Suspect]
     Active Substance: CLINDAMYCIN PHOSPHATE
     Indication: ACUTE TONSILLITIS
     Dosage: 600 MG, 3X/DAY
     Route: 048
     Dates: start: 20150320, end: 20150320
  2. DALACIN C [Suspect]
     Active Substance: CLINDAMYCIN PHOSPHATE
     Dosage: 300 MG, 3X/DAY
     Route: 048
     Dates: start: 20150321, end: 20150324
  3. DALACIN C [Suspect]
     Active Substance: CLINDAMYCIN PHOSPHATE
     Dosage: 300 MG, 1X/DAY
     Route: 048
     Dates: start: 20150325, end: 20150325

REACTIONS (4)
  - Flushing [Recovering/Resolving]
  - Rash maculo-papular [Recovering/Resolving]
  - Rash morbilliform [Recovering/Resolving]
  - Erythema [Recovering/Resolving]

NARRATIVE: CASE EVENT DATE: 20150324
